FAERS Safety Report 20077637 (Version 7)
Quarter: 2022Q2

REPORT INFORMATION
  Report Type: Report from Study
  Country: EG (occurrence: EG)
  Receive Date: 20211116
  Receipt Date: 20220420
  Transmission Date: 20220721
  Serious: Yes (Other)
  Sender: FDA-Public Use
  Company Number: EG-JNJFOC-20210909821

PATIENT
  Age: 63 Year
  Sex: Male

DRUGS (12)
  1. IBRUTINIB [Suspect]
     Active Substance: IBRUTINIB
     Indication: Chronic lymphocytic leukaemia
     Route: 048
     Dates: start: 20200701, end: 202101
  2. IBRUTINIB [Suspect]
     Active Substance: IBRUTINIB
     Route: 048
     Dates: start: 20210425
  3. IBRUTINIB [Suspect]
     Active Substance: IBRUTINIB
     Route: 048
  4. IBRUTINIB [Suspect]
     Active Substance: IBRUTINIB
     Dosage: 2 TABLETS EVERYDAY AS PER PHYSICIAN
     Route: 048
     Dates: start: 20211110, end: 20211126
  5. IBRUTINIB [Suspect]
     Active Substance: IBRUTINIB
     Route: 048
     Dates: end: 20220220
  6. ERYTHROPOIETIN [Concomitant]
     Active Substance: ERYTHROPOIETIN
     Indication: Product used for unknown indication
     Route: 065
  7. LEVOCARNITINE [Concomitant]
     Active Substance: LEVOCARNITINE
     Indication: Product used for unknown indication
     Route: 065
  8. MARCAL [Concomitant]
     Indication: Product used for unknown indication
     Route: 065
  9. VOTREX [Concomitant]
     Indication: Product used for unknown indication
     Route: 065
  10. INSULIN NOS [Concomitant]
     Active Substance: INSULIN NOS
     Indication: Product used for unknown indication
     Route: 065
  11. HERBALS [Concomitant]
     Active Substance: HERBALS
     Indication: Product used for unknown indication
     Route: 065
  12. SILYMARINE [Concomitant]
     Indication: Product used for unknown indication

REACTIONS (12)
  - Gallbladder disorder [Recovered/Resolved]
  - Abdominal pain upper [Recovered/Resolved]
  - Incorrect dose administered [Unknown]
  - Off label use [Unknown]
  - Hyperchlorhydria [Recovered/Resolved]
  - Furuncle [Not Recovered/Not Resolved]
  - Diarrhoea [Recovered/Resolved]
  - Vomiting [Recovered/Resolved]
  - Constipation [Recovering/Resolving]
  - Epistaxis [Recovered/Resolved]
  - Pain [Recovered/Resolved]
  - Nausea [Not Recovered/Not Resolved]

NARRATIVE: CASE EVENT DATE: 20210125
